FAERS Safety Report 17980614 (Version 9)
Quarter: 2020Q3

REPORT INFORMATION
  Report Type: Report from Study
  Country: None (occurrence: ES)
  Receive Date: 20200704
  Receipt Date: 20200922
  Transmission Date: 20201103
  Serious: Yes (Other)
  Sender: FDA-Public Use
  Company Number: ES-ABBVIE-20K-144-3399249-00

PATIENT
  Age: 57 Year
  Sex: Male
  Weight: 90 kg

DRUGS (2)
  1. DUODOPA [Suspect]
     Active Substance: CARBIDOPA\LEVODOPA
  2. DUODOPA [Suspect]
     Active Substance: CARBIDOPA\LEVODOPA
     Indication: PARKINSON^S DISEASE
     Route: 050
     Dates: start: 20190227

REACTIONS (16)
  - Groin pain [Recovering/Resolving]
  - Stoma site erythema [Recovered/Resolved]
  - Stoma site discharge [Recovered/Resolved]
  - Granuloma [Recovering/Resolving]
  - Dysuria [Recovering/Resolving]
  - Osteoporosis [Recovering/Resolving]
  - On and off phenomenon [Recovering/Resolving]
  - Stoma site infection [Recovering/Resolving]
  - Urinary retention [Recovering/Resolving]
  - Pruritus [Recovering/Resolving]
  - Spinal fracture [Recovering/Resolving]
  - Stoma site discharge [Recovering/Resolving]
  - Diplegia [Recovering/Resolving]
  - Pain in extremity [Recovering/Resolving]
  - Muscular weakness [Recovering/Resolving]
  - Stoma site erythema [Recovering/Resolving]

NARRATIVE: CASE EVENT DATE: 202003
